FAERS Safety Report 7959970-7 (Version None)
Quarter: 2011Q4

REPORT INFORMATION
  Report Type: 
  Country: None (occurrence: None)
  Receive Date: 20111206
  Receipt Date: 20111202
  Transmission Date: 20120403
  Serious: Yes (Death, Life-Threatening, Hospitalization, Other)
  Sender: FDA-Public Use
  Company Number: SE-PFIZER INC-2011267861

PATIENT
  Age: 92 Year
  Sex: Male

DRUGS (15)
  1. LYRICA [Suspect]
     Indication: ANXIETY
     Dosage: 75 MG, 2X/DAY
     Route: 048
     Dates: start: 20111005, end: 20111006
  2. HEMINEURIN [Concomitant]
     Dosage: 600 MG, 1X/DAY
     Dates: start: 20110929, end: 20111006
  3. ARANESP [Concomitant]
     Dosage: 40 MG/ML, EVERY 2 WEEKS
  4. LYRICA [Suspect]
     Indication: SLEEP DISORDER
     Dosage: 75 MG
     Route: 048
     Dates: start: 20111004, end: 20111005
  5. LYRICA [Suspect]
     Dosage: 75 MG, 1X/DAY
     Route: 048
     Dates: start: 20111007, end: 20111007
  6. OMEPRAZOLE [Concomitant]
     Dosage: 20 MG
  7. SODIUM CARBONATE [Concomitant]
     Dosage: 1G
  8. ASPIRIN [Concomitant]
     Dosage: 75 MG, 1X/DAY
  9. PAMOL [Concomitant]
     Dosage: 500 MG
     Dates: start: 20110906
  10. MIRTAZAPINE [Concomitant]
     Dosage: 15 MG, 1X/DAY
     Dates: end: 20110928
  11. ETALPHA [Concomitant]
     Dosage: 0.25 MG
  12. ZOLPIDEM TARTRATE [Concomitant]
     Dosage: 5 MG, 1X/DAY
     Dates: start: 20110330, end: 20110927
  13. OXASCAND [Concomitant]
     Dosage: RECEIVED TOTALLY 15 MG DURING THE NIGHT
     Dates: start: 20111005, end: 20111005
  14. FUROSEMIDE [Concomitant]
     Dosage: 500 MG
  15. IMDUR [Concomitant]
     Dosage: 30 MG, 1X/DAY

REACTIONS (19)
  - MOBILITY DECREASED [None]
  - ABDOMINAL PAIN LOWER [None]
  - DAYDREAMING [None]
  - ANXIETY [None]
  - APHAGIA [None]
  - SEDATION [None]
  - COUGH [None]
  - VISUAL ACUITY REDUCED [None]
  - DYSURIA [None]
  - VISION BLURRED [None]
  - DYSSTASIA [None]
  - SPUTUM INCREASED [None]
  - URINARY INCONTINENCE [None]
  - DYSARTHRIA [None]
  - FATIGUE [None]
  - APATHY [None]
  - SOMNOLENCE [None]
  - DYSPHAGIA [None]
  - TREMOR [None]
